FAERS Safety Report 15832440 (Version 1)
Quarter: 2018Q4

REPORT INFORMATION
  Report Type: Spontaneous
  Country: US (occurrence: US)
  Receive Date: 20181220
  Receipt Date: 20181220
  Transmission Date: 20190205
  Serious: No
  Sender: FDA-Public Use
  Company Number: None

PATIENT
  Sex: Female

DRUGS (1)
  1. OCALIVA [Suspect]
     Active Substance: OBETICHOLIC ACID
     Dosage: ?          OTHER FREQUENCY:ONCE DAILY;?
     Route: 048
     Dates: start: 20171228, end: 20181030

REACTIONS (2)
  - Therapy cessation [None]
  - Blood iron decreased [None]
